FAERS Safety Report 5932218-0 (Version None)
Quarter: 2008Q4

REPORT INFORMATION
  Report Type: 
  Country: None (occurrence: None)
  Receive Date: 20081028
  Receipt Date: 20081017
  Transmission Date: 20090506
  Serious: Yes (Death, Life-Threatening, Hospitalization)
  Sender: FDA-Public Use
  Company Number: JP-JNJFOC-20051205691

PATIENT
  Sex: Male
  Weight: 48 kg

DRUGS (20)
  1. LEUSTATIN [Suspect]
     Indication: LYMPHOCYTIC LYMPHOMA
     Dosage: FREQUENCY UNSPECIFIED
     Route: 042
  2. RITUXAN [Concomitant]
     Indication: LYMPHOCYTIC LYMPHOMA
     Route: 042
  3. COTRIM [Concomitant]
     Indication: PROPHYLAXIS
     Route: 048
  4. FUNGUARD [Concomitant]
     Route: 042
  5. FUNGUARD [Concomitant]
     Indication: INFECTION
     Route: 042
  6. MEROPEN [Concomitant]
     Indication: INFECTION
     Route: 042
  7. ZYLORIC [Concomitant]
     Indication: PROPHYLAXIS
     Route: 048
  8. ZYLORIC [Concomitant]
     Indication: HYPERURICAEMIA
     Route: 048
  9. CONCENTRATED HUMAN BLOOD PLATELET [Concomitant]
     Route: 042
  10. CONCENTRATED HUMAN BLOOD PLATELET [Concomitant]
     Route: 042
  11. CONCENTRATED HUMAN BLOOD PLATELET [Concomitant]
     Route: 042
  12. CONCENTRATED HUMAN BLOOD PLATELET [Concomitant]
     Route: 042
  13. CONCENTRATED HUMAN RED BLOOD CELLS [Concomitant]
     Route: 042
  14. CONCENTRATED HUMAN RED BLOOD CELLS [Concomitant]
     Route: 042
  15. CONCENTRATED HUMAN RED BLOOD CELLS [Concomitant]
     Route: 042
  16. PREDONINE [Concomitant]
     Indication: LYMPHOCYTIC LYMPHOMA
     Route: 042
  17. FIRSTCIN [Concomitant]
     Indication: INFECTION
     Route: 042
  18. CARBENIN [Concomitant]
     Indication: INFECTION
     Route: 042
  19. SULPERAZON [Concomitant]
     Indication: INFECTION
     Route: 042
  20. NEUTROGIN [Concomitant]
     Route: 058

REACTIONS (17)
  - ALANINE AMINOTRANSFERASE INCREASED [None]
  - ANAEMIA [None]
  - ASPARTATE AMINOTRANSFERASE INCREASED [None]
  - BLOOD BILIRUBIN INCREASED [None]
  - BLOOD CREATININE INCREASED [None]
  - BLOOD LACTATE DEHYDROGENASE INCREASED [None]
  - BLOOD UREA INCREASED [None]
  - HYPOALBUMINAEMIA [None]
  - HYPOPROTEINAEMIA [None]
  - INFECTION [None]
  - LEUKOPENIA [None]
  - LYMPHOMA [None]
  - LYMPHOPENIA [None]
  - NEUTROPENIA [None]
  - PNEUMOCYSTIS JIROVECI PNEUMONIA [None]
  - PYREXIA [None]
  - THROMBOCYTOPENIA [None]
